FAERS Safety Report 25888908 (Version 4)
Quarter: 2025Q4

REPORT INFORMATION
  Report Type: Spontaneous
  Country: EU (occurrence: EU)
  Receive Date: 20251007
  Receipt Date: 20251118
  Transmission Date: 20260118
  Serious: Yes (Death, Life-Threatening, Hospitalization, Other)
  Sender: AUROBINDO
  Company Number: EU-JNJFOC-20250717883

PATIENT
  Age: 71 Year
  Sex: Female

DRUGS (8)
  1. BORTEZOMIB [Suspect]
     Active Substance: BORTEZOMIB
     Indication: Plasma cell myeloma
     Dosage: 1 MILLIGRAM/SQ. METER (KIT NO.51645-07)
     Dates: start: 20190513, end: 20191025
  2. LENALIDOMIDE [Suspect]
     Active Substance: LENALIDOMIDE
     Indication: Plasma cell myeloma
     Dosage: 10 MILLIGRAM (MED KIT NO. 72774)
     Dates: start: 20190513, end: 20250604
  3. DARATUMUMAB [Suspect]
     Active Substance: DARATUMUMAB
     Indication: Plasma cell myeloma
     Dosage: 1800 MILLIGRAM (MED KIT NO. 26627)
     Dates: start: 20190513, end: 20250528
  4. DEXAMETHASONE [Suspect]
     Active Substance: DEXAMETHASONE
     Indication: Plasma cell myeloma
     Dosage: 4 MILLIGRAM (MED KIT NO. 42179)
     Dates: start: 20190513, end: 20250604
  5. FURAZIDINE [Concomitant]
     Active Substance: FURAZIDINE
     Indication: Hypertension
     Dosage: UNK
     Route: 065
     Dates: start: 202507, end: 202507
  6. TRAMADOL [Concomitant]
     Active Substance: TRAMADOL
     Indication: Analgesic therapy
     Dosage: UNK
     Route: 065
     Dates: start: 202507, end: 202507
  7. Pyralgin [Concomitant]
     Indication: Analgesic therapy
     Dosage: UNK
     Route: 065
     Dates: start: 202507, end: 202507
  8. POTASSIUM CHLORIDE [Concomitant]
     Active Substance: POTASSIUM CHLORIDE
     Indication: Prophylaxis
     Dosage: UNK
     Route: 065
     Dates: start: 202507, end: 202507

REACTIONS (7)
  - Respiratory failure [Fatal]
  - Gastrointestinal obstruction [Recovered/Resolved with Sequelae]
  - Small intestine adenocarcinoma [Recovered/Resolved]
  - Intestinal adenocarcinoma [Recovering/Resolving]
  - Gastrointestinal disorder [Recovered/Resolved with Sequelae]
  - Gastroenteritis [Recovered/Resolved with Sequelae]
  - Cardiac arrest [Unknown]

NARRATIVE: CASE EVENT DATE: 20250708
